FAERS Safety Report 14187168 (Version 1)
Quarter: 2017Q4

REPORT INFORMATION
  Report Type: Spontaneous
  Country: US (occurrence: US)
  Receive Date: 20171114
  Receipt Date: 20171114
  Transmission Date: 20180321
  Serious: No
  Sender: FDA-Public Use
  Company Number: US-APOTEX-2017AP016878

PATIENT
  Age: 62 Year
  Sex: Female

DRUGS (1)
  1. MEGESTROL ACETATE ORAL SUSPENSION USP [Suspect]
     Active Substance: MEGESTROL ACETATE
     Indication: ENDOMETRIAL CANCER
     Dosage: UNK
     Route: 065

REACTIONS (2)
  - Lymphoedema [Unknown]
  - Weight increased [Recovered/Resolved]
